FAERS Safety Report 11562148 (Version 2)
Quarter: 2015Q4

REPORT INFORMATION
  Report Type: Report from Study
  Country: BR (occurrence: BR)
  Receive Date: 20150928
  Receipt Date: 20151002
  Transmission Date: 20160304
  Serious: Yes (Other)
  Sender: FDA-Public Use
  Company Number: PHHY2015BR115770

PATIENT
  Sex: Female
  Weight: 33 kg

DRUGS (1)
  1. ACLASTA [Suspect]
     Active Substance: ZOLEDRONIC ACID
     Indication: OSTEOPOROSIS
     Dosage: 1 DF, Q12MO (STARTED 7 YEARS AGO)
     Route: 065

REACTIONS (5)
  - Phlebitis [Recovered/Resolved]
  - Femoral nerve injury [Recovered/Resolved]
  - Fall [Recovered/Resolved]
  - Joint injury [Recovered/Resolved]
  - Muscular weakness [Recovered/Resolved]
